FAERS Safety Report 5811838-8 (Version None)
Quarter: 2008Q3

REPORT INFORMATION
  Report Type: 
  Country: None (occurrence: None)
  Receive Date: 20080715
  Receipt Date: 20080715
  Transmission Date: 20090109
  Serious: No
  Sender: FDA-Public Use
  Company Number: None

PATIENT
  Sex: Male

DRUGS (1)
  1. DEPO-TESTOSTERONE [Suspect]
     Dosage: 200MG -1ML- I EVERY TWO WEEKS IM
     Route: 030

REACTIONS (2)
  - DRY SKIN [None]
  - RASH GENERALISED [None]
